FAERS Safety Report 20502649 (Version 1)
Quarter: 2022Q1

REPORT INFORMATION
  Report Type: Spontaneous
  Country: US (occurrence: None)
  Receive Date: 20220221
  Receipt Date: 20220221
  Transmission Date: 20220423
  Serious: No
  Sender: FDA-Public Use
  Company Number: None

PATIENT
  Age: 57 Year
  Sex: Female
  Weight: 53.07 kg

DRUGS (3)
  1. HUMIRA [Suspect]
     Active Substance: ADALIMUMAB
     Indication: Ankylosing spondylitis
     Dosage: FREQUENCY : WEEKLY;?
     Route: 058
     Dates: start: 202103
  2. HUMIRA [Suspect]
     Active Substance: ADALIMUMAB
     Indication: Muscular weakness
  3. HUMIRA [Suspect]
     Active Substance: ADALIMUMAB
     Indication: Senile osteoporosis

REACTIONS (2)
  - Illness [None]
  - Therapy interrupted [None]
